FAERS Safety Report 9312793 (Version 3)
Quarter: 2013Q2

REPORT INFORMATION
  Report Type: Report from Study
  Country: US (occurrence: US)
  Receive Date: 20130528
  Receipt Date: 20130617
  Transmission Date: 20140414
  Serious: Yes (Hospitalization)
  Sender: FDA-Public Use
  Company Number: US-009507513-1305USA013494

PATIENT
  Age: 33 Year
  Sex: Male
  Weight: 117.73 kg

DRUGS (9)
  1. ASENAPINE MALEATE-SCHIZOPHRENIA [Suspect]
     Indication: SCHIZOPHRENIA
     Dosage: 5 MG, BID
     Route: 060
     Dates: start: 20130517
  2. RISPERIDONE [Concomitant]
     Indication: PSYCHOTIC DISORDER
     Dosage: 6 UNK, UNK
     Route: 048
     Dates: start: 201203, end: 20130509
  3. RISPERIDONE [Concomitant]
     Dosage: 3 MG, QH
     Route: 048
     Dates: start: 20130510, end: 20130514
  4. ATIVAN [Concomitant]
     Indication: AGITATION
     Dosage: 2 MG, PRN
     Route: 048
     Dates: start: 20130510
  5. ATIVAN [Concomitant]
     Indication: INSOMNIA
  6. OMEGA-3 [Concomitant]
     Indication: ROUTINE HEALTH MAINTENANCE
     Dosage: 2000 MG, UNK
     Route: 048
     Dates: start: 2012
  7. VITAMINS (UNSPECIFIED) [Concomitant]
     Indication: ROUTINE HEALTH MAINTENANCE
     Dosage: 1 DF, QD
     Route: 048
     Dates: start: 2012
  8. ATENOLOL [Concomitant]
     Indication: HYPERTENSION
     Dosage: 25 MG, QD
     Route: 048
     Dates: start: 2012
  9. PAXIL [Concomitant]
     Indication: DEPRESSIVE SYMPTOM
     Dosage: 20 MG, QAM
     Route: 048
     Dates: start: 2011, end: 20130509

REACTIONS (1)
  - Psychotic disorder [Recovered/Resolved]
